FAERS Safety Report 10186084 (Version 1)
Quarter: 2014Q2

REPORT INFORMATION
  Report Type: Spontaneous
  Country: US (occurrence: US)
  Receive Date: 20140521
  Receipt Date: 20140521
  Transmission Date: 20141212
  Serious: Yes (Other)
  Sender: FDA-Public Use
  Company Number: US-PERRIGO-14US005062

PATIENT
  Age: 78 Year
  Sex: Female
  Weight: 90.7 kg

DRUGS (22)
  1. GUAIFENESIN 20 MG/ML TUSSIN CS 310 [Suspect]
     Indication: COUGH
     Dosage: 400 MG, SINGLE
     Route: 048
     Dates: start: 20140513, end: 20140513
  2. GUAIFENESIN 20 MG/ML TUSSIN CS 310 [Suspect]
     Dosage: 400 MG, BID, PRN
     Route: 048
     Dates: start: 20140501, end: 20140505
  3. OXYGEN [Concomitant]
     Indication: LUNG DISORDER
     Dosage: UNK, UNK
     Route: 055
  4. LOPERAMIDE [Concomitant]
     Indication: DIARRHOEA
     Dosage: UNK, UNK
     Route: 048
  5. AZELASTINE [Concomitant]
     Indication: HYPERSENSITIVITY
     Dosage: UNK, UNK
     Route: 045
  6. CLARITIN                           /00413701/ [Concomitant]
     Indication: HYPERSENSITIVITY
     Dosage: UNK, UNK
     Route: 048
  7. LEVOTHYROXINE [Concomitant]
     Indication: HYPOTHYROIDISM
     Dosage: UNK, UNK
     Route: 048
  8. LAMICTAL [Concomitant]
     Indication: AFFECTIVE DISORDER
     Dosage: UNK, UNK
     Route: 048
  9. LACTAID [Concomitant]
     Indication: LACTOSE INTOLERANCE
     Dosage: UNK, UNK
     Route: 048
  10. HYDRALAZINE [Concomitant]
     Indication: HYPERTENSION
     Dosage: UNK,UNK
     Route: 048
  11. ARICEPT [Concomitant]
     Indication: BIPOLAR DISORDER
     Dosage: UNK, UNK
     Route: 048
  12. CLONIDINE [Concomitant]
     Indication: BLOOD PRESSURE
     Dosage: UNK, UNK
     Route: 065
  13. CHOLESTYRAMINE [Concomitant]
     Indication: BLOOD CHOLESTEROL INCREASED
     Dosage: UNK, UNK
     Route: 048
  14. ECOTRIN [Concomitant]
     Indication: ANTICOAGULANT THERAPY
     Dosage: 81 MF, UNK
     Route: 048
  15. TYLENOL                            /00020001/ [Concomitant]
     Indication: PAIN
     Dosage: 500 MG, UNK
     Route: 048
  16. DIOVAN [Concomitant]
     Indication: HYPERTENSION
     Dosage: UNK, UNK
     Route: 048
  17. VENTOLIN                           /00139501/ [Concomitant]
     Indication: LUNG DISORDER
     Dosage: UNK, UNK
     Route: 055
  18. DULERA [Concomitant]
     Indication: LUNG DISORDER
     Dosage: UNK, UNK
     Route: 055
  19. ADVAIR [Concomitant]
     Indication: LUNG DISORDER
     Dosage: UNK, UNK
     Route: 055
  20. SINGULAIR [Concomitant]
     Indication: LUNG DISORDER
     Dosage: UNK, UNK
     Route: 048
  21. ANTACID [Concomitant]
     Indication: GASTRIC DISORDER
     Dosage: UNK,UNK
     Route: 048
  22. METOPROLOL [Concomitant]
     Indication: CARDIAC DISORDER
     Dosage: UNK,UNK
     Route: 048

REACTIONS (1)
  - Hallucination [Recovered/Resolved]
